FAERS Safety Report 9893403 (Version 1)
Quarter: 2014Q1

REPORT INFORMATION
  Report Type: Spontaneous
  Country: US (occurrence: US)
  Receive Date: 20140213
  Receipt Date: 20140213
  Transmission Date: 20141002
  Serious: Yes (Hospitalization)
  Sender: FDA-Public Use
  Company Number: US-BAYER-2014-022694

PATIENT
  Age: 31 Year
  Sex: Female

DRUGS (2)
  1. YASMIN [Suspect]
  2. MOTRIN [Concomitant]
     Indication: HEADACHE

REACTIONS (1)
  - Pulmonary embolism [Recovered/Resolved]
